FAERS Safety Report 14108471 (Version 1)
Quarter: 2017Q4

REPORT INFORMATION
  Report Type: Report from Study
  Country: US (occurrence: US)
  Receive Date: 20171019
  Receipt Date: 20171019
  Transmission Date: 20180321
  Serious: Yes (Death, Other)
  Sender: FDA-Public Use
  Company Number: US-ARIAD PHARMACEUTICALS, INC-2017US008537

PATIENT
  Age: 69 Year
  Sex: Female
  Weight: 73 kg

DRUGS (3)
  1. ICLUSIG [Suspect]
     Active Substance: PONATINIB
     Dosage: 45 MG, QOD
     Route: 048
  2. ICLUSIG [Suspect]
     Active Substance: PONATINIB
     Indication: CHOLANGIOCARCINOMA
     Dosage: 45 MG, QD
     Route: 048
     Dates: start: 20131107
  3. ICLUSIG [Suspect]
     Active Substance: PONATINIB
     Dosage: 45 MG, QD
     Route: 048

REACTIONS (10)
  - Radiotherapy [Unknown]
  - Rash papular [Not Recovered/Not Resolved]
  - Off label use [Unknown]
  - Peripheral swelling [Unknown]
  - Eating disorder [Unknown]
  - Rash [Not Recovered/Not Resolved]
  - Death [Fatal]
  - Fatigue [Unknown]
  - Weight decreased [Unknown]
  - Dry skin [Unknown]

NARRATIVE: CASE EVENT DATE: 20171013
